FAERS Safety Report 5373256-9 (Version None)
Quarter: 2007Q2

REPORT INFORMATION
  Report Type: 
  Country: None (occurrence: None)
  Receive Date: 20070628
  Receipt Date: 20070621
  Transmission Date: 20071010
  Serious: Yes (Other)
  Sender: FDA-Public Use
  Company Number: PHEH2007US06134

PATIENT
  Age: 64 Year
  Sex: Female

DRUGS (4)
  1. ZELNORM [Suspect]
     Indication: IRRITABLE BOWEL SYNDROME
     Dosage: 6 MG, BID
     Route: 048
     Dates: start: 20060701, end: 20070419
  2. SYNTHROID [Concomitant]
  3. DIOVAN [Concomitant]
  4. METOPROLOL SUCCINATE [Concomitant]

REACTIONS (4)
  - ASTHENIA [None]
  - CORONARY ARTERY OCCLUSION [None]
  - FATIGUE [None]
  - SENSATION OF HEAVINESS [None]
